FAERS Safety Report 4749547-9 (Version None)
Quarter: 2005Q3

REPORT INFORMATION
  Report Type: 
  Country: None (occurrence: None)
  Receive Date: 20050822
  Receipt Date: 20050809
  Transmission Date: 20060218
  Serious: Yes (Hospitalization)
  Sender: FDA-Public Use
  Company Number: IE-JNJFOC-20050800018

PATIENT
  Sex: Female

DRUGS (12)
  1. DURAGESIC-100 [Suspect]
     Route: 062
  2. DURAGESIC-100 [Suspect]
     Route: 062
  3. TRAMADOL HCL [Suspect]
     Route: 048
  4. TRAMADOL HCL [Suspect]
     Route: 048
  5. EFFEXOR [Concomitant]
     Route: 065
  6. RAMIPRIL [Concomitant]
     Route: 065
  7. ISTIN [Concomitant]
     Route: 065
  8. SEROQUEL [Concomitant]
     Route: 065
  9. LIORESAL [Concomitant]
     Route: 065
  10. EPILIM [Concomitant]
     Route: 065
  11. WARFANT [Concomitant]
     Route: 065
  12. AULIN [Concomitant]
     Route: 065

REACTIONS (3)
  - DYSPNOEA [None]
  - HALLUCINATION [None]
  - PNEUMONIA ASPIRATION [None]
